FAERS Safety Report 23604828 (Version 3)
Quarter: 2024Q2

REPORT INFORMATION
  Report Type: Spontaneous
  Country: CH (occurrence: CH)
  Receive Date: 20240307
  Receipt Date: 20240409
  Transmission Date: 20240716
  Serious: No
  Sender: FDA-Public Use
  Company Number: CH-PFIZER INC-PV202400021363

PATIENT

DRUGS (1)
  1. MEDROXYPROGESTERONE [Suspect]
     Active Substance: MEDROXYPROGESTERONE
     Dosage: SAYANA SASUS 160 MG/ML 0.65 ML

REACTIONS (2)
  - Device occlusion [Unknown]
  - Drug dose omission by device [Unknown]
